FAERS Safety Report 5704286-2 (Version None)
Quarter: 2008Q2

REPORT INFORMATION
  Report Type: 
  Country: None (occurrence: None)
  Receive Date: 20080409
  Receipt Date: 20080325
  Transmission Date: 20081010
  Serious: Yes (Disabling, Other)
  Sender: FDA-Public Use
  Company Number: 2007BM000205

PATIENT
  Age: 7 Year
  Sex: Male
  Weight: 14.6 kg

DRUGS (6)
  1. NAGLAZYME [Suspect]
     Indication: MUCOPOLYSACCHARIDOSIS VI
     Dosage: 1.5 ML; QM; INTH, 15 MG; X1; IV, 15 MG; X1; IV, 1.5 ML; X1; INTH, 15 MG; X1; IV, 1 ML/KG; QW; IV
     Dates: start: 20070101, end: 20070101
  2. NAGLAZYME [Suspect]
     Indication: MUCOPOLYSACCHARIDOSIS VI
     Dosage: 1.5 ML; QM; INTH, 15 MG; X1; IV, 15 MG; X1; IV, 1.5 ML; X1; INTH, 15 MG; X1; IV, 1 ML/KG; QW; IV
     Dates: start: 20070316, end: 20070622
  3. NAGLAZYME [Suspect]
     Indication: MUCOPOLYSACCHARIDOSIS VI
     Dosage: 1.5 ML; QM; INTH, 15 MG; X1; IV, 15 MG; X1; IV, 1.5 ML; X1; INTH, 15 MG; X1; IV, 1 ML/KG; QW; IV
     Dates: start: 20071108, end: 20071108
  4. NAGLAZYME [Suspect]
     Indication: MUCOPOLYSACCHARIDOSIS VI
     Dosage: 1.5 ML; QM; INTH, 15 MG; X1; IV, 15 MG; X1; IV, 1.5 ML; X1; INTH, 15 MG; X1; IV, 1 ML/KG; QW; IV
     Dates: start: 20071122, end: 20071122
  5. NAGLAZYME [Suspect]
     Indication: MUCOPOLYSACCHARIDOSIS VI
     Dosage: 1.5 ML; QM; INTH, 15 MG; X1; IV, 15 MG; X1; IV, 1.5 ML; X1; INTH, 15 MG; X1; IV, 1 ML/KG; QW; IV
     Dates: start: 20071220, end: 20071220
  6. NAGLAZYME [Suspect]
     Indication: MUCOPOLYSACCHARIDOSIS VI
     Dosage: 1.5 ML; QM; INTH, 15 MG; X1; IV, 15 MG; X1; IV, 1.5 ML; X1; INTH, 15 MG; X1; IV, 1 ML/KG; QW; IV
     Dates: end: 20080320

REACTIONS (14)
  - ABASIA [None]
  - CLONUS [None]
  - DISEASE PROGRESSION [None]
  - HYPERREFLEXIA [None]
  - HYPOTONIA [None]
  - ILL-DEFINED DISORDER [None]
  - IMMUNE SYSTEM DISORDER [None]
  - MUSCLE SPASTICITY [None]
  - MUSCULAR WEAKNESS [None]
  - NERVOUS SYSTEM DISORDER [None]
  - NUCLEAR MAGNETIC RESONANCE IMAGING BRAIN ABNORMAL [None]
  - OXYGEN SATURATION DECREASED [None]
  - PYRAMIDAL TRACT SYNDROME [None]
  - URINARY INCONTINENCE [None]
